FAERS Safety Report 5261641-5 (Version None)
Quarter: 2007Q1

REPORT INFORMATION
  Report Type: 
  Country: None (occurrence: None)
  Receive Date: 20061218
  Receipt Date: 20060804
  Transmission Date: 20070707
  Serious: No
  Sender: FDA-Public Use
  Company Number: US200608001408

PATIENT
  Age: 58 Year
  Sex: Male

DRUGS (3)
  1. CIALIS [Suspect]
     Indication: ERECTILE DYSFUNCTION
     Dosage: 10 MG
     Dates: start: 20060601, end: 20060721
  2. ASACOL [Concomitant]
  3. ANTIDEPRESSANTS [Concomitant]

REACTIONS (1)
  - SCROTAL SWELLING [None]
